FAERS Safety Report 16056047 (Version 1)
Quarter: 2019Q1

REPORT INFORMATION
  Report Type: Report from Study
  Country: CN (occurrence: CN)
  Receive Date: 20190311
  Receipt Date: 20190311
  Transmission Date: 20190418
  Serious: Yes (Other)
  Sender: FDA-Public Use
  Company Number: CN-ROCHE-2274385

PATIENT

DRUGS (3)
  1. CAPECITABINE. [Suspect]
     Active Substance: CAPECITABINE
     Indication: GASTRIC CANCER
     Route: 065
  2. OXALIPLATIN. [Suspect]
     Active Substance: OXALIPLATIN
     Indication: GASTRIC CANCER
     Route: 041
  3. CISPLATINE [Suspect]
     Active Substance: CISPLATIN
     Indication: GASTRIC CANCER
     Route: 041

REACTIONS (7)
  - Vomiting [Unknown]
  - Platelet count decreased [Unknown]
  - Nausea [Unknown]
  - Neurotoxicity [Unknown]
  - Anaemia [Unknown]
  - Decreased appetite [Unknown]
  - White blood cell count decreased [Unknown]
